FAERS Safety Report 26042801 (Version 1)
Quarter: 2025Q4

REPORT INFORMATION
  Report Type: Spontaneous
  Country: US (occurrence: None)
  Receive Date: 20251113
  Receipt Date: 20251113
  Transmission Date: 20260118
  Serious: Yes (Hospitalization)
  Sender: FDA-CTU
  Company Number: None

PATIENT
  Age: 74 Year
  Sex: Male

DRUGS (15)
  1. TACROLIMUS [Suspect]
     Active Substance: TACROLIMUS
     Indication: Immunosuppression
     Dosage: FREQUENCY : TWICE A DAY;?
     Route: 048
     Dates: start: 20240810
  2. AZITHROMYCIN ANHYDROUS [Concomitant]
     Active Substance: AZITHROMYCIN ANHYDROUS
     Dates: start: 20250210
  3. Atovaquone 750mg/5ml [Concomitant]
     Dates: start: 20250616
  4. calcium600+D [Concomitant]
     Dates: start: 20240917
  5. DOXAZOSIN [Concomitant]
     Active Substance: DOXAZOSIN MESYLATE
     Dates: start: 20250716
  6. ELIQUIS [Concomitant]
     Active Substance: APIXABAN
     Dates: start: 20250617
  7. FIASP [Concomitant]
     Active Substance: INSULIN ASPART
     Dates: start: 20250127
  8. FUROSEMIDE [Concomitant]
     Active Substance: FUROSEMIDE
     Dates: start: 20240926
  9. Melatonin 3mg [Concomitant]
     Dates: start: 20240917
  10. mgplus 133mg [Concomitant]
     Dates: start: 20240917
  11. OMEPRAZOLE [Concomitant]
     Active Substance: OMEPRAZOLE
     Dates: start: 20240820
  12. POSACONAZOLE [Concomitant]
     Active Substance: POSACONAZOLE
     Dates: start: 20250617
  13. PREDNISONE [Concomitant]
     Active Substance: PREDNISONE
     Dates: start: 20250814
  14. tab-a-vite with iron [Concomitant]
     Dates: start: 20240816
  15. VALACYCLOVIR [Concomitant]
     Active Substance: VALACYCLOVIR HYDROCHLORIDE
     Dates: start: 20250513

REACTIONS (6)
  - Ulcer haemorrhage [None]
  - Transfusion [None]
  - Renal failure [None]
  - Dialysis [None]
  - Neurotoxicity [None]
  - Toxicity to various agents [None]

NARRATIVE: CASE EVENT DATE: 20251006
